FAERS Safety Report 11247692 (Version 1)
Quarter: 2015Q2

REPORT INFORMATION
  Report Type: Report from Study
  Country: US (occurrence: None)
  Receive Date: 20150617
  Receipt Date: 20150617
  Transmission Date: 20150821
  Serious: No
  Sender: FDA-Public Use
  Company Number: 2014TASUS000465

PATIENT
  Age: 69 Year
  Sex: Male
  Weight: 93 kg

DRUGS (7)
  1. MELATONIN [Concomitant]
     Active Substance: MELATONIN
  2. CITALOPRAM (CITALOPRAM HYDROCHLORIDE) [Concomitant]
  3. TEMAZEPAM. [Concomitant]
     Active Substance: TEMAZEPAM
  4. SIMVASTATIN. [Concomitant]
     Active Substance: SIMVASTATIN
  5. MAGNESIUM [Concomitant]
     Active Substance: MAGNESIUM
  6. LEVOTHYROXINE (LEVOTHYROXINE SODIUM) [Concomitant]
  7. HETLIOZ [Suspect]
     Active Substance: TASIMELTEON
     Indication: CIRCADIAN RHYTHM SLEEP DISORDER
     Route: 048
     Dates: start: 20140801

REACTIONS (2)
  - Intentional product misuse [None]
  - Abnormal dreams [None]

NARRATIVE: CASE EVENT DATE: 20140803
